FAERS Safety Report 7545708-4 (Version None)
Quarter: 2011Q2

REPORT INFORMATION
  Report Type: 
  Country: None (occurrence: None)
  Receive Date: 20110613
  Receipt Date: 20110613
  Transmission Date: 20111010
  Serious: Yes (Other)
  Sender: FDA-Public Use
  Company Number: None

PATIENT
  Age: 33 Year
  Sex: Male
  Weight: 68.0396 kg

DRUGS (1)
  1. HALOPERIDOL DECANOATE [Suspect]
     Indication: SCHIZOPHRENIA
     Dosage: 150MG Q 4 WEEKS IM GREATER THAN 5 YEARS
     Route: 030

REACTIONS (3)
  - INJECTION SITE OEDEMA [None]
  - INJECTION SITE WARMTH [None]
  - INJECTION SITE PAIN [None]
